FAERS Safety Report 21200254 (Version 1)
Quarter: 2022Q3

REPORT INFORMATION
  Report Type: Spontaneous
  Country: CA (occurrence: CA)
  Receive Date: 20220811
  Receipt Date: 20220811
  Transmission Date: 20221027
  Serious: Yes (Life-Threatening)
  Sender: FDA-Public Use
  Company Number: CA-PFIZER INC-202201045658

PATIENT
  Age: 4 Year
  Sex: Female
  Weight: 17 kg

DRUGS (26)
  1. RITUXIMAB [Suspect]
     Active Substance: RITUXIMAB
     Indication: Epstein-Barr virus infection
     Dosage: 260 MG (ONCE)
     Route: 042
  2. BUSULFAN [Suspect]
     Active Substance: BUSULFAN
     Indication: Transplant
     Dosage: 94 MG
     Route: 042
  3. FLUDARABINE [Suspect]
     Active Substance: FLUDARABINE PHOSPHATE
     Indication: Transplant
     Dosage: 20 MG
     Route: 042
  4. ACYCLOVIR [Concomitant]
     Active Substance: ACYCLOVIR
  5. AMLODIPINE [Concomitant]
     Active Substance: AMLODIPINE BESYLATE
     Route: 065
  6. THYMOCYTE IMMUNE GLOBULIN NOS [Concomitant]
     Active Substance: THYMOCYTE IMMUNE GLOBULIN NOS
  7. CALCIUM CARBONATE\CHOLECALCIFEROL [Concomitant]
     Active Substance: CALCIUM CARBONATE\CHOLECALCIFEROL
     Route: 065
  8. CEFTAZIDIME [Concomitant]
     Active Substance: CEFTAZIDIME
  9. CYCLOSPORINE [Concomitant]
     Active Substance: CYCLOSPORINE
  10. DEXAMETHASONE [Concomitant]
     Active Substance: DEXAMETHASONE
  11. FAMOTIDINE [Concomitant]
     Active Substance: FAMOTIDINE
  12. FLUCONAZOLE [Concomitant]
     Active Substance: FLUCONAZOLE
  13. FOSCARNET SODIUM [Concomitant]
     Active Substance: FOSCARNET SODIUM
     Route: 042
  14. FUROSEMIDE [Concomitant]
     Active Substance: FUROSEMIDE
  15. LEVETIRACETAM [Concomitant]
     Active Substance: LEVETIRACETAM
     Route: 065
  16. LORAZEPAM [Concomitant]
     Active Substance: LORAZEPAM
     Route: 065
  17. MAGNESIUM [Concomitant]
     Active Substance: MAGNESIUM
  18. MELATONIN [Concomitant]
     Active Substance: MELATONIN
  19. METHYLPREDNISOLONE [Concomitant]
     Active Substance: METHYLPREDNISOLONE
  20. METOCLOPRAMIDE [Concomitant]
     Active Substance: METOCLOPRAMIDE
  21. MORPHINE [Concomitant]
     Active Substance: MORPHINE
  22. MYCOPHENOLATE MOFETIL [Concomitant]
     Active Substance: MYCOPHENOLATE MOFETIL
  23. ONDANSETRON [Concomitant]
     Active Substance: ONDANSETRON
  24. PIPERACILLIN SODIUM\TAZOBACTAM SODIUM [Concomitant]
     Active Substance: PIPERACILLIN SODIUM\TAZOBACTAM SODIUM
  25. POLYETHYLENE GLYCOLS [Concomitant]
     Active Substance: POLYETHYLENE GLYCOLS
  26. TRANEXAMIC ACID [Concomitant]
     Active Substance: TRANEXAMIC ACID

REACTIONS (3)
  - Aplastic anaemia [Recovered/Resolved]
  - Mucosal inflammation [Recovered/Resolved]
  - Pain [Recovered/Resolved]
